FAERS Safety Report 7021289-9 (Version None)
Quarter: 2010Q3

REPORT INFORMATION
  Report Type: 
  Country: None (occurrence: None)
  Receive Date: 20100927
  Receipt Date: 20100914
  Transmission Date: 20110219
  Serious: Yes (Congenital Anomaly)
  Sender: FDA-Public Use
  Company Number: AUR-APL-2010-02288

PATIENT
  Sex: Female
  Weight: 0.79 kg

DRUGS (4)
  1. LAMOTRIGINE [Suspect]
     Indication: PRODUCT USED FOR UNKNOWN INDICATION
     Dosage: TRANSPLACENTAL
     Route: 064
  2. LEVETIRACETAM [Suspect]
     Indication: PRODUCT USED FOR UNKNOWN INDICATION
     Dosage: TRANSPLACENTAL
     Route: 064
  3. FOLIC ACID [Concomitant]
  4. ;ABETALOL [Concomitant]

REACTIONS (3)
  - CONGENITAL CEREBRAL CYST [None]
  - EXOMPHALOS [None]
  - MATERNAL DRUGS AFFECTING FOETUS [None]
